FAERS Safety Report 18992874 (Version 1)
Quarter: 2021Q1

REPORT INFORMATION
  Report Type: Spontaneous
  Country: IN (occurrence: IN)
  Receive Date: 20210310
  Receipt Date: 20210310
  Transmission Date: 20210420
  Serious: Yes (Hospitalization, Other)
  Sender: FDA-Public Use
  Company Number: IN-INSUD PHARMA-2103IN00238

PATIENT

DRUGS (2)
  1. NUVESSA [Suspect]
     Active Substance: METRONIDAZOLE
     Indication: LIVER ABSCESS
     Dosage: UNKNOWN
     Route: 065
  2. AMOXICILLIN CLAVULANIC ACID [Concomitant]
     Active Substance: AMOXICILLIN\CLAVULANIC ACID
     Indication: LIVER ABSCESS

REACTIONS (8)
  - Toxic encephalopathy [Recovered/Resolved]
  - Ataxia [Recovered/Resolved]
  - Dysdiadochokinesis [Recovered/Resolved]
  - Nervous system disorder [Recovered/Resolved]
  - Dysmetria [Recovered/Resolved]
  - Dysarthria [Recovered/Resolved]
  - Neurotoxicity [Recovered/Resolved]
  - Intention tremor [Recovered/Resolved]
